FAERS Safety Report 17146560 (Version 2)
Quarter: 2020Q1

REPORT INFORMATION
  Report Type: Spontaneous
  Country: FR (occurrence: FR)
  Receive Date: 20191212
  Receipt Date: 20200124
  Transmission Date: 20200409
  Serious: Yes (Hospitalization)
  Sender: FDA-Public Use
  Company Number: FR-MYLANLABS-2019M1122076

PATIENT
  Age: 67 Year
  Sex: Male
  Weight: 87 kg

DRUGS (1)
  1. PIPERACILLIN,TAZOBACTAM MYLAN [Suspect]
     Active Substance: PIPERACILLIN SODIUM\TAZOBACTAM SODIUM
     Indication: INFECTION
     Dosage: 8 GRAM, QD
     Route: 042
     Dates: start: 20190723, end: 20190724

REACTIONS (2)
  - Seizure [Recovered/Resolved with Sequelae]
  - Product prescribing error [Recovered/Resolved with Sequelae]

NARRATIVE: CASE EVENT DATE: 20190723
